FAERS Safety Report 6432124-1 (Version None)
Quarter: 2009Q4

REPORT INFORMATION
  Report Type: 
  Country: None (occurrence: None)
  Receive Date: 20091109
  Receipt Date: 20091102
  Transmission Date: 20100525
  Serious: Yes (Death)
  Sender: FDA-Public Use
  Company Number: US-BRACCO-003670

PATIENT
  Age: 71 Year
  Sex: Male

DRUGS (4)
  1. ISOVUE-128 [Suspect]
     Indication: CHEST PAIN
     Route: 042
     Dates: start: 20091028, end: 20091028
  2. ISOVUE-128 [Suspect]
     Indication: COMPUTERISED TOMOGRAM
     Route: 042
     Dates: start: 20091028, end: 20091028
  3. ISOVUE-128 [Suspect]
     Indication: HYPERTENSION
     Route: 042
     Dates: start: 20091028, end: 20091028
  4. ANTI-ASTHMATICS [Concomitant]
     Dosage: 3 BUFFS
     Dates: start: 20091028, end: 20091028

REACTIONS (5)
  - DYSPNOEA [None]
  - LOSS OF CONSCIOUSNESS [None]
  - MICTURITION URGENCY [None]
  - NAUSEA [None]
  - VOMITING [None]
